FAERS Safety Report 6456380-9 (Version None)
Quarter: 2009Q4

REPORT INFORMATION
  Report Type: 
  Country: None (occurrence: None)
  Receive Date: 20091125
  Receipt Date: 20091112
  Transmission Date: 20100525
  Serious: Yes (Hospitalization)
  Sender: FDA-Public Use
  Company Number: PHEH2009US13766

PATIENT
  Sex: Male

DRUGS (9)
  1. EXJADE [Suspect]
     Indication: IRON METABOLISM DISORDER
     Dosage: 2000 MG, QD
     Route: 048
     Dates: start: 20090922
  2. EXJADE [Suspect]
     Dosage: 3000 MG, QD
     Route: 048
  3. VALTREX [Concomitant]
     Dosage: UNK, UNK
     Route: 065
  4. ZOFRAN [Concomitant]
     Dosage: UNK, UNK
     Route: 065
  5. POTASSIUM CHLORIDE [Concomitant]
     Dosage: UNK, UNK
     Route: 065
  6. OMEPRAZOLE [Concomitant]
     Dosage: UNK, UNK
     Route: 065
  7. FOLIC ACID [Concomitant]
     Dosage: UNK, UNK
     Route: 065
  8. LASIX [Concomitant]
     Dosage: UNK, UNK
     Route: 065
  9. PREDNISONE [Concomitant]
     Dosage: UNK, UNK
     Route: 065

REACTIONS (7)
  - BLINDNESS [None]
  - LIVER FUNCTION TEST ABNORMAL [None]
  - PLATELET COUNT DECREASED [None]
  - PLEURAL EFFUSION [None]
  - PNEUMONIA [None]
  - RETINAL LASER COAGULATION [None]
  - VITREOUS HAEMORRHAGE [None]
